FAERS Safety Report 12135137 (Version 2)
Quarter: 2016Q2

REPORT INFORMATION
  Report Type: Spontaneous
  Country: FR (occurrence: FR)
  Receive Date: 20160301
  Receipt Date: 20160405
  Transmission Date: 20160815
  Serious: Yes (Death)
  Sender: FDA-Public Use
  Company Number: FR-009507513-1602FRA012485

PATIENT
  Age: 59 Year
  Sex: Male

DRUGS (3)
  1. ESMERON [Suspect]
     Active Substance: ROCURONIUM BROMIDE
     Indication: INDUCTION OF ANAESTHESIA
     Dosage: 30 MG, SINGLE INTAKE
     Route: 042
     Dates: start: 20160211, end: 20160211
  2. SUFENTANIL [Suspect]
     Active Substance: SUFENTANIL
     Indication: INDUCTION OF ANAESTHESIA
     Dosage: 25 MICROGRAM, SINGLE INTAKE
     Route: 042
     Dates: start: 20160211, end: 20160211
  3. PROPOFOL. [Suspect]
     Active Substance: PROPOFOL
     Indication: INDUCTION OF ANAESTHESIA
     Dosage: 150 MG, SINGLE INTAKE
     Route: 042
     Dates: start: 20160211, end: 20160211

REACTIONS (2)
  - Anaphylactic shock [Fatal]
  - Cardio-respiratory arrest [Fatal]

NARRATIVE: CASE EVENT DATE: 20160211
